FAERS Safety Report 11498479 (Version 1)
Quarter: 2015Q3

REPORT INFORMATION
  Report Type: Spontaneous
  Country: US (occurrence: US)
  Receive Date: 20150911
  Receipt Date: 20150911
  Transmission Date: 20151125
  Serious: No
  Sender: FDA-Public Use
  Company Number: US-ASTRAZENECA-2015SE84009

PATIENT
  Sex: Female

DRUGS (2)
  1. SEROQUEL XR [Suspect]
     Active Substance: QUETIAPINE FUMARATE
     Dosage: FREQUENCY UNKNOWN
     Route: 048
     Dates: start: 201508
  2. SEROQUEL XR [Suspect]
     Active Substance: QUETIAPINE FUMARATE
     Dosage: FREQUENCY UNKNOWN
     Route: 048

REACTIONS (2)
  - Drug withdrawal syndrome [Unknown]
  - Drug dose omission [Unknown]
